FAERS Safety Report 9586704 (Version 2)
Quarter: 2013Q4

REPORT INFORMATION
  Report Type: Spontaneous
  Country: US (occurrence: US)
  Receive Date: 20131003
  Receipt Date: 20131003
  Transmission Date: 20140711
  Serious: No
  Sender: FDA-Public Use
  Company Number: US-BAXTER-2013BAX003017

PATIENT
  Age: 70 Year
  Sex: Female

DRUGS (6)
  1. DIANEAL LOW CALCIUM [Suspect]
     Indication: PERITONEAL DIALYSIS
     Route: 033
  2. DIANEAL LOW CALCIUM [Suspect]
     Indication: PERITONEAL DIALYSIS
     Route: 033
  3. DIANEAL LOW CALCIUM [Suspect]
     Indication: PERITONEAL DIALYSIS
     Route: 033
  4. CIPROFLOXACIN [Suspect]
     Indication: URINARY TRACT INFECTION
     Route: 048
  5. CIPROFLOXACIN [Suspect]
     Indication: ABDOMINAL PAIN
  6. CIPROFLOXACIN [Suspect]
     Indication: ABDOMINAL PAIN

REACTIONS (6)
  - Urinary tract infection [Recovering/Resolving]
  - Malaise [Recovering/Resolving]
  - Abdominal pain [Recovering/Resolving]
  - Condition aggravated [Recovering/Resolving]
  - Abdominal pain [Recovering/Resolving]
  - Vomiting [Not Recovered/Not Resolved]
